FAERS Safety Report 9551309 (Version 1)
Quarter: 2013Q2

REPORT INFORMATION
  Report Type: Spontaneous
  Country: US (occurrence: None)
  Receive Date: 20130627
  Receipt Date: 20130627
  Transmission Date: 20140414
  Serious: No
  Sender: FDA-Public Use
  Company Number: 1000045104

PATIENT
  Age: 65 Year
  Sex: Female

DRUGS (12)
  1. LINZESS [Suspect]
     Indication: CONSTIPATION
     Route: 048
     Dates: start: 20130510
  2. PROBIOTICS [Suspect]
     Indication: CONSTIPATION
     Dates: start: 20130508
  3. FUROSEMIDE [Concomitant]
  4. ASPIRIN (ACETYLSALICYLIC ACID) [Concomitant]
  5. LOSARTAN [Concomitant]
  6. BETAPACE (SOTALOL HYDROCHLORIDE) [Concomitant]
  7. SYNTHROID (LEVOTHYROXINE SODIUM) [Concomitant]
  8. HUMALOG (INSULIN LISPRO) [Concomitant]
  9. XOPENNEX(LEVOSALBUTAMOL HYDROCHLORIDE) [Concomitant]
  10. DULERA [Concomitant]
  11. LYRICA (PREGABALIN) [Concomitant]
  12. PROTONIX (PANTOPRAZOLE SODIUM SESQUIHYDRATE) [Concomitant]

REACTIONS (3)
  - Diarrhoea [None]
  - Abdominal pain [None]
  - Abdominal distension [None]
